FAERS Safety Report 10195439 (Version 2)
Quarter: 2014Q3

REPORT INFORMATION
  Report Type: Spontaneous
  Country: US (occurrence: US)
  Receive Date: 20140526
  Receipt Date: 20140708
  Transmission Date: 20150326
  Serious: No
  Sender: FDA-Public Use
  Company Number: US-009507513-1405USA011368

PATIENT
  Sex: Female
  Weight: 63.49 kg

DRUGS (1)
  1. OXYTROL FOR WOMEN [Suspect]
     Active Substance: OXYBUTYNIN
     Indication: MICTURITION URGENCY
     Dosage: 1 DF, Q4D
     Route: 062
     Dates: start: 201402, end: 201406

REACTIONS (3)
  - Application site scar [Not Recovered/Not Resolved]
  - Application site pruritus [Recovered/Resolved]
  - Product adhesion issue [Unknown]

NARRATIVE: CASE EVENT DATE: 2014
